FAERS Safety Report 8221896-1 (Version None)
Quarter: 2012Q1

REPORT INFORMATION
  Report Type: 
  Country: None (occurrence: None)
  Receive Date: 20120320
  Receipt Date: 20120309
  Transmission Date: 20120608
  Serious: Yes (Hospitalization, Other)
  Sender: FDA-Public Use
  Company Number: IT-JNJFOC-20120303381

PATIENT
  Age: 60 Year
  Sex: Male
  Weight: 88 kg

DRUGS (9)
  1. URSILON [Concomitant]
     Route: 065
  2. ANGIOTENSIN II ANTAGONISTS AND DIURETICS [Concomitant]
     Route: 065
  3. ACETAMINOPHEN [Concomitant]
     Indication: PREMEDICATION
     Route: 048
  4. METHYLPREDNISOLONE [Concomitant]
     Indication: PREMEDICATION
     Route: 042
  5. REMICADE [Suspect]
     Indication: RHEUMATOID ARTHRITIS
     Dosage: 4TH INFUSION
     Route: 042
     Dates: start: 20120202, end: 20120202
  6. REMICADE [Suspect]
     Route: 042
     Dates: start: 20111027
  7. METHOTREXATE [Concomitant]
     Indication: RHEUMATOID ARTHRITIS
     Route: 065
     Dates: start: 20110201
  8. LANSOPRAZOLE [Concomitant]
     Route: 048
  9. CHLOR-TRIMETON [Concomitant]
     Indication: PREMEDICATION
     Route: 048

REACTIONS (2)
  - ABDOMINAL PAIN UPPER [None]
  - ANGIOEDEMA [None]
